FAERS Safety Report 8530363-7 (Version None)
Quarter: 2012Q3

REPORT INFORMATION
  Report Type: 
  Country: None (occurrence: None)
  Receive Date: 20120723
  Receipt Date: 20120713
  Transmission Date: 20120928
  Serious: Yes (Other)
  Sender: FDA-Public Use
  Company Number: US-PFIZER INC-2012170419

PATIENT
  Sex: Female

DRUGS (2)
  1. VESICARE [Suspect]
     Indication: HYPERTONIC BLADDER
     Dosage: UNK
  2. DETROL LA [Suspect]
     Indication: HYPERTONIC BLADDER
     Dosage: UNK

REACTIONS (7)
  - DYSARTHRIA [None]
  - THINKING ABNORMAL [None]
  - DIZZINESS [None]
  - DRY MOUTH [None]
  - VISION BLURRED [None]
  - DYSPNOEA [None]
  - CONSTIPATION [None]
